FAERS Safety Report 8304066-8 (Version None)
Quarter: 2012Q2

REPORT INFORMATION
  Report Type: 
  Country: None (occurrence: None)
  Receive Date: 20120423
  Receipt Date: 20120411
  Transmission Date: 20120825
  Serious: Yes (Other)
  Sender: FDA-Public Use
  Company Number: JP-BRISTOL-MYERS SQUIBB COMPANY-16533820

PATIENT

DRUGS (1)
  1. ABILIFY [Suspect]
     Route: 048

REACTIONS (3)
  - GINGIVAL BLEEDING [None]
  - HAEMORRHAGE SUBCUTANEOUS [None]
  - GENITAL HAEMORRHAGE [None]
